FAERS Safety Report 11919912 (Version 1)
Quarter: 2016Q1

REPORT INFORMATION
  Report Type: Spontaneous
  Country: FR (occurrence: FR)
  Receive Date: 20160115
  Receipt Date: 20160115
  Transmission Date: 20160526
  Serious: Yes (Hospitalization)
  Sender: FDA-Public Use
  Company Number: FR-ASTRAZENECA-2016SE03007

PATIENT
  Age: 77 Year
  Sex: Male

DRUGS (9)
  1. IXPRIM [Concomitant]
     Active Substance: ACETAMINOPHEN\TRAMADOL HYDROCHLORIDE
  2. ZYLORIC [Concomitant]
     Active Substance: ALLOPURINOL
  3. INEXIUM [Suspect]
     Active Substance: ESOMEPRAZOLE
     Indication: ULCER
     Route: 048
  4. ATENOLOL. [Concomitant]
     Active Substance: ATENOLOL
  5. CORTANCYL [Concomitant]
     Active Substance: PREDNISONE
  6. CORDARONE [Suspect]
     Active Substance: AMIODARONE HYDROCHLORIDE
     Indication: ARRHYTHMIA
     Route: 065
     Dates: start: 20151009
  7. AMLOR [Suspect]
     Active Substance: AMLODIPINE BESYLATE
     Route: 065
  8. XATRAL [Concomitant]
     Active Substance: ALFUZOSIN
  9. XARELTO [Suspect]
     Active Substance: RIVAROXABAN
     Indication: ATRIAL FIBRILLATION
     Route: 048
     Dates: start: 20151009, end: 20151203

REACTIONS (1)
  - Pemphigoid [Unknown]

NARRATIVE: CASE EVENT DATE: 20151127
